FAERS Safety Report 20887498 (Version 1)
Quarter: 2022Q2

REPORT INFORMATION
  Report Type: Spontaneous
  Country: CN (occurrence: CN)
  Receive Date: 20220528
  Receipt Date: 20220528
  Transmission Date: 20220721
  Serious: Yes (Other)
  Sender: FDA-Public Use
  Company Number: CN-STRIDES ARCOLAB LIMITED-2022SP006159

PATIENT
  Age: 59 Year
  Sex: Male

DRUGS (10)
  1. DEXAMETHASONE [Suspect]
     Active Substance: DEXAMETHASONE
     Indication: Blastic plasmacytoid dendritic cell neoplasia
     Dosage: 1 MILLIGRAM/KILOGRAM PER DAY (FOR 14 CONSECUTIVE DAYS.
     Route: 048
  2. DEXAMETHASONE [Suspect]
     Active Substance: DEXAMETHASONE
     Dosage: UNK (DOSE WAS REDUCED REDUCED BY 1/3 ON DAYS 15-28)
     Route: 048
  3. VINCRISTINE [Suspect]
     Active Substance: VINCRISTINE
     Indication: Blastic plasmacytoid dendritic cell neoplasia
     Dosage: 2 MILLIGRAM (ON DAY 1, 8, 15, AND 22)
     Route: 042
  4. DAUNORUBICIN [Suspect]
     Active Substance: DAUNORUBICIN
     Indication: Blastic plasmacytoid dendritic cell neoplasia
     Dosage: 40 MILLIGRAM/SQ. METER (ON DAYS 1-3 AND 15-16 IV DRIP)
     Route: 041
  5. ASPARAGINASE [Suspect]
     Active Substance: ASPARAGINASE
     Indication: Blastic plasmacytoid dendritic cell neoplasia
     Dosage: 6000IU/M2- IV DRIP ON DAYS 11, 14, 17, 20, 23 AND 26
     Route: 041
  6. CYTOXAN [Suspect]
     Active Substance: CYCLOPHOSPHAMIDE
     Indication: Blastic plasmacytoid dendritic cell neoplasia
     Dosage: 750 MILLIGRAM/SQ. METER (ON DAYS 1 AND 8)
     Route: 041
  7. MESNA [Suspect]
     Active Substance: MESNA
     Indication: Blastic plasmacytoid dendritic cell neoplasia
     Dosage: UNK
     Route: 065
  8. CYTARABINE [Suspect]
     Active Substance: CYTARABINE
     Indication: Blastic plasmacytoid dendritic cell neoplasia
     Dosage: 100 MILLIGRAM/SQ. METER PER DAY (IV DRIP-ON DAYS 1-3 AND 8-10)
     Route: 041
  9. MERCAPTOPURINE [Suspect]
     Active Substance: MERCAPTOPURINE
     Indication: Blastic plasmacytoid dendritic cell neoplasia
     Dosage: 60 MILLIGRAM/SQ. METER PER DAY (ON DAY 1-7)
     Route: 048
  10. NIFEDIPINE [Concomitant]
     Active Substance: NIFEDIPINE
     Indication: Hypertension
     Dosage: UNK
     Route: 048

REACTIONS (2)
  - Myelosuppression [Unknown]
  - Pneumonia [Unknown]

NARRATIVE: CASE EVENT DATE: 20130101
